APPROVED DRUG PRODUCT: ISOPROTERENOL HYDROCHLORIDE
Active Ingredient: ISOPROTERENOL HYDROCHLORIDE
Strength: 0.2MG/ML
Dosage Form/Route: INJECTABLE;INJECTION
Application: A206961 | Product #001 | TE Code: AP
Applicant: NEXUS PHARMACEUTICALS LLC
Approved: Aug 2, 2017 | RLD: No | RS: Yes | Type: RX